FAERS Safety Report 14068057 (Version 1)
Quarter: 2017Q4

REPORT INFORMATION
  Report Type: Spontaneous
  Country: US (occurrence: US)
  Receive Date: 20171009
  Receipt Date: 20171009
  Transmission Date: 20180321
  Serious: Yes (Hospitalization, Disabling)
  Sender: FDA-Public Use
  Company Number: None

PATIENT
  Sex: Female
  Weight: 49.05 kg

DRUGS (5)
  1. TYLENOL [Concomitant]
     Active Substance: ACETAMINOPHEN
  2. BONIVA [Suspect]
     Active Substance: IBANDRONATE SODIUM
     Indication: OSTEOPOROSIS
     Dosage: ?          QUANTITY:1 CAPSULE(S);OTHER FREQUENCY:1;?
     Route: 048
  3. CALCIUM [Concomitant]
     Active Substance: CALCIUM
  4. TREMEDOL [Concomitant]
  5. CENTRUM [Concomitant]
     Active Substance: VITAMINS

REACTIONS (1)
  - Femur fracture [None]

NARRATIVE: CASE EVENT DATE: 20170907
